FAERS Safety Report 24396307 (Version 1)
Quarter: 2024Q4

REPORT INFORMATION
  Report Type: Spontaneous
  Country: US (occurrence: US)
  Receive Date: 20241004
  Receipt Date: 20241004
  Transmission Date: 20250115
  Serious: Yes (Other)
  Sender: PFIZER
  Company Number: US-PFIZER INC-PV202400127575

PATIENT
  Age: 83 Year
  Sex: Male
  Weight: 100.2 kg

DRUGS (4)
  1. PROCARDIA XL [Suspect]
     Active Substance: NIFEDIPINE
     Dosage: 30 MG, TAKE 1 TAB BY MOUTH AS DIRECTED
     Route: 048
     Dates: start: 20240905
  2. LORAZEPAM [Suspect]
     Active Substance: LORAZEPAM
     Dosage: 0.5 MG, TAKE 0.5 TABS BY MOUTH THREE TIMES PER DAY AS NEEDED
     Route: 048
  3. NEURONTIN [Suspect]
     Active Substance: GABAPENTIN
     Dosage: 600 MG, 1X/DAY, TAKE 1 TAB BY MOUTH EVERY NIGHT AT BEDTIME
     Route: 048
     Dates: start: 20240402
  4. REVATIO [Suspect]
     Active Substance: SILDENAFIL CITRATE
     Dosage: 20 MG, AS NEEDED, TAKE 1 TAB BY MOUTH ONCE DAILY AS NEEDED. TAKE 2 TO 5 TABLETS BY MOUTH AS DIRECTED
     Route: 048
     Dates: start: 20240905

REACTIONS (22)
  - Cardiac failure [Unknown]
  - Cardiac amyloidosis [Unknown]
  - Heart failure with preserved ejection fraction [Unknown]
  - Arteriosclerosis coronary artery [Unknown]
  - Cardiac failure chronic [Unknown]
  - Transcatheter aortic valve implantation [Unknown]
  - Transcatheter aortic valve implantation [Unknown]
  - Product prescribing error [Unknown]
  - Dyspnoea exertional [Unknown]
  - Oedema peripheral [Unknown]
  - Cardiac imaging procedure abnormal [Unknown]
  - Coronary artery disease [Unknown]
  - Oedema [Unknown]
  - Chronic left ventricular failure [Unknown]
  - Brain natriuretic peptide increased [Unknown]
  - Blood glucose increased [Unknown]
  - Red blood cell count decreased [Unknown]
  - Haemoglobin decreased [Unknown]
  - Haematocrit decreased [Unknown]
  - Left ventricular hypertrophy [Unknown]
  - Fluid retention [Unknown]
  - Aortic valve stenosis [Unknown]
